FAERS Safety Report 5716584-7 (Version None)
Quarter: 2008Q2

REPORT INFORMATION
  Report Type: 
  Country: None (occurrence: None)
  Receive Date: 20080424
  Receipt Date: 20080411
  Transmission Date: 20081010
  Serious: Yes (Hospitalization, Other)
  Sender: FDA-Public Use
  Company Number: US-ELI_LILLY_AND_COMPANY-US200804003231

PATIENT
  Sex: Female

DRUGS (6)
  1. FORTEO [Suspect]
     Indication: OSTEOPOROSIS
     Dates: start: 20080201
  2. PAXIL [Concomitant]
  3. REQUIP [Concomitant]
  4. DARVOCET [Concomitant]
  5. VITAMINS NOS [Concomitant]
  6. CALCIUM [Concomitant]
     Indication: SUPPLEMENTATION THERAPY

REACTIONS (1)
  - BREAST CANCER [None]
